FAERS Safety Report 10264883 (Version 1)
Quarter: 2014Q2

REPORT INFORMATION
  Report Type: Spontaneous
  Country: US (occurrence: None)
  Receive Date: 20140625
  Receipt Date: 20140625
  Transmission Date: 20141212
  Serious: Yes (Disabling)
  Sender: FDA-Public Use
  Company Number: None

PATIENT
  Age: 81 Year
  Sex: Female
  Weight: 104.7 kg

DRUGS (2)
  1. WARFARIN [Suspect]
     Indication: ATRIAL FIBRILLATION
     Dosage: COUMADIN 2.5MG, 2XWK/PO?5MG  5XWK/PO
  2. LOVENOX [Suspect]
     Dosage: 5/24 TO 5/27 AM; 5/29 PM TO ADMI
     Route: 058

REACTIONS (2)
  - Back pain [None]
  - Extradural haematoma [None]
